FAERS Safety Report 5622923-8 (Version None)
Quarter: 2008Q1

REPORT INFORMATION
  Report Type: 
  Country: None (occurrence: None)
  Receive Date: 20080212
  Receipt Date: 20080205
  Transmission Date: 20080703
  Serious: Yes (Other)
  Sender: FDA-Public Use
  Company Number: PHFR2008GB00802

PATIENT
  Sex: Male

DRUGS (1)
  1. MELLARIL [Suspect]
     Dosage: 750 MG, ONCE/SINGLE
     Route: 048

REACTIONS (1)
  - INTENTIONAL OVERDOSE [None]
